FAERS Safety Report 15762517 (Version 3)
Quarter: 2019Q1

REPORT INFORMATION
  Report Type: Spontaneous
  Country: DK (occurrence: DK)
  Receive Date: 20181226
  Receipt Date: 20190115
  Transmission Date: 20190417
  Serious: Yes (Life-Threatening, Hospitalization, Other)
  Sender: FDA-Public Use
  Company Number: DK-PFIZER INC-2018524255

PATIENT
  Age: 47 Year
  Sex: Female

DRUGS (12)
  1. AIROMIR [SALBUTAMOL SULFATE] [Concomitant]
     Active Substance: ALBUTEROL SULFATE
     Indication: ASTHMA
     Dosage: 0.1 MG, AS NEEDED
     Route: 055
     Dates: start: 20150205
  2. CIRCADIN [Concomitant]
     Active Substance: MELATONIN
     Indication: INSOMNIA
     Dosage: 2 MG AS NEEDED (2-3 TABLETS AS NEEDED)
     Route: 048
     Dates: start: 20171205
  3. CARBOPLATIN. [Suspect]
     Active Substance: CARBOPLATIN
     Indication: SMALL CELL LUNG CANCER
     Dosage: 540 MG, SINGLE
     Route: 042
     Dates: start: 20181029, end: 20181029
  4. TRUXAL [CHLORPROTHIXENE ACETATE] [Concomitant]
     Indication: SEDATIVE THERAPY
     Dosage: 50 MG, 1X/DAY
     Route: 048
     Dates: start: 20131017
  5. LITAREX [LEVOFLOXACIN] [Concomitant]
     Active Substance: LEVOFLOXACIN
     Indication: DEPRESSION
     Dosage: 3.5 DF, 1X/DAY
     Route: 048
     Dates: start: 20130819
  6. IMOZOP [Concomitant]
     Active Substance: ZOPICLONE
     Indication: INSOMNIA
     Dosage: 3.75 MG, 1X/DAY
     Route: 048
     Dates: start: 20140828
  7. NORITREN [Concomitant]
     Active Substance: NORTRIPTYLINE HYDROCHLORIDE
     Indication: DEPRESSION
     Dosage: 125 MG, 1X/DAY
     Route: 048
     Dates: start: 20131018
  8. OXABENZ [Concomitant]
     Active Substance: OXAZEPAM
     Indication: SEDATIVE THERAPY
     Dosage: 7.5 MG, AS NEEDED, MAX 3 DAILY
     Route: 048
  9. ETOPOSIDE. [Suspect]
     Active Substance: ETOPOSIDE
     Indication: SMALL CELL LUNG CANCER
     Dosage: 180 MG, UNK
     Route: 042
     Dates: start: 20181029, end: 20181031
  10. METOCLOPRAMIDE. [Concomitant]
     Active Substance: METOCLOPRAMIDE
     Indication: ADVERSE DRUG REACTION
     Dosage: 30 MG, AS NEEDED (MAX 4 X DAILY)
     Route: 048
     Dates: start: 20180803
  11. PREDNISOLONE. [Concomitant]
     Active Substance: PREDNISOLONE
     Indication: ADRENOCORTICAL STEROID THERAPY
     Dosage: 200 MG, 1X/DAY
     Route: 048
     Dates: start: 20171223
  12. PANTOLOC CONTROL [Concomitant]
     Active Substance: PANTOPRAZOLE SODIUM
     Indication: GASTRIC ULCER
     Dosage: 40 MG, 1X/DAY
     Route: 048
     Dates: start: 20171205

REACTIONS (2)
  - Stenosis [Recovering/Resolving]
  - Acute myocardial infarction [Recovering/Resolving]

NARRATIVE: CASE EVENT DATE: 201811
